FAERS Safety Report 6385987-2 (Version None)
Quarter: 2009Q4

REPORT INFORMATION
  Report Type: 
  Country: None (occurrence: None)
  Receive Date: 20091002
  Receipt Date: 20081118
  Transmission Date: 20100525
  Serious: No
  Sender: FDA-Public Use
  Company Number: US-ASTRAZENECA-2008UW25890

PATIENT
  Age: 71 Year
  Sex: Female
  Weight: 59 kg

DRUGS (4)
  1. ARIMIDEX [Suspect]
     Indication: BREAST CANCER
     Dosage: UNKNOWN
     Route: 048
  2. SYNTHROID [Concomitant]
  3. ZYRTEC [Concomitant]
  4. CELEBREX [Concomitant]

REACTIONS (7)
  - ABDOMINAL DISTENSION [None]
  - ARTHRITIS [None]
  - CONSTIPATION [None]
  - DYSPHONIA [None]
  - HAIR GROWTH ABNORMAL [None]
  - OEDEMA PERIPHERAL [None]
  - VAGINAL ODOUR [None]
